FAERS Safety Report 5774441-4 (Version None)
Quarter: 2008Q2

REPORT INFORMATION
  Report Type: 
  Country: None (occurrence: None)
  Receive Date: 20080616
  Receipt Date: 20080604
  Transmission Date: 20081010
  Serious: Yes (Hospitalization)
  Sender: FDA-Public Use
  Company Number: FI-PFIZER INC-2008048103

PATIENT
  Sex: Female

DRUGS (23)
  1. LYRICA [Suspect]
     Indication: NEURALGIA
     Route: 048
     Dates: start: 20071015, end: 20080501
  2. DUREKAL [Concomitant]
     Route: 048
  3. TRAMADOL HCL [Concomitant]
     Route: 048
  4. ACETAMINOPHEN [Concomitant]
  5. VALTREX [Concomitant]
     Route: 048
  6. NEXIUM [Concomitant]
     Route: 048
  7. EMGESAN [Concomitant]
     Route: 048
  8. SYMBICORT [Concomitant]
     Route: 055
  9. MEDROL [Concomitant]
     Route: 048
  10. EMCONCOR [Concomitant]
     Route: 048
  11. DOLAN [Concomitant]
     Route: 048
  12. ADALAT [Concomitant]
     Route: 048
  13. RETAFYLLIN [Concomitant]
     Route: 048
  14. MONTELUKAST SODIUM [Concomitant]
     Route: 048
  15. VENTOLIN [Concomitant]
  16. COZAAR [Concomitant]
     Route: 048
  17. LESCOL [Concomitant]
     Route: 048
  18. DIFORMIN [Concomitant]
     Route: 048
  19. LANTUS [Concomitant]
     Route: 058
  20. LANTUS [Concomitant]
     Route: 058
  21. NOVORAPID [Concomitant]
     Route: 058
  22. IDEOS [Concomitant]
     Route: 048
  23. PROGYNOVA [Concomitant]
     Route: 048

REACTIONS (2)
  - DIPLOPIA [None]
  - STRABISMUS [None]
